FAERS Safety Report 5603380-4 (Version None)
Quarter: 2008Q1

REPORT INFORMATION
  Report Type: 
  Country: None (occurrence: None)
  Receive Date: 20080122
  Receipt Date: 20080110
  Transmission Date: 20080703
  Serious: Yes (Hospitalization, Other)
  Sender: FDA-Public Use
  Company Number: A-CH2007-18691

PATIENT
  Age: 26 Year
  Sex: Female
  Weight: 52 kg

DRUGS (9)
  1. TRACLEER [Suspect]
     Indication: PULMONARY HYPERTENSION
     Dosage: 125 MG, BID, ORAL
     Route: 048
     Dates: start: 20071114, end: 20071129
  2. CLEXANE (ENOXAPARIN SODIUM) [Concomitant]
  3. ACETHYLDIGOXIN (ACETYLDIGOXIN) [Concomitant]
  4. ACETYLSALICYLIC ACID SRT [Concomitant]
  5. ZYPREXA [Concomitant]
  6. TOREM (TORASEMIDE) [Concomitant]
  7. PANTOZOL-RIFUN (PANTOPRAZOLE SODIUM) [Concomitant]
  8. SPIRONOLACTONE [Concomitant]
  9. HYDROCHLOROTHIAZIDE (HYDROHLOROTHIAZIDE) [Concomitant]

REACTIONS (3)
  - ALANINE AMINOTRANSFERASE INCREASED [None]
  - ASPARTATE AMINOTRANSFERASE INCREASED [None]
  - INFECTION [None]
